FAERS Safety Report 10176975 (Version 1)
Quarter: 2014Q2

REPORT INFORMATION
  Report Type: Spontaneous
  Country: US (occurrence: US)
  Receive Date: 20140516
  Receipt Date: 20140516
  Transmission Date: 20141212
  Serious: Yes (Hospitalization, Other)
  Sender: FDA-Public Use
  Company Number: US-ELI_LILLY_AND_COMPANY-US201405001205

PATIENT
  Sex: Male

DRUGS (2)
  1. HUMALOG LISPRO [Suspect]
     Indication: DIABETES MELLITUS
     Dosage: UNK, QID
     Route: 058
     Dates: start: 2008
  2. LANTUS [Concomitant]

REACTIONS (4)
  - Myocardial infarction [Unknown]
  - Renal impairment [Unknown]
  - Blood creatinine increased [Unknown]
  - Injection site bruising [Unknown]
